FAERS Safety Report 9225296 (Version 2)
Quarter: 2013Q2

REPORT INFORMATION
  Report Type: Report from Study
  Country: CA (occurrence: CA)
  Receive Date: 20130411
  Receipt Date: 20130422
  Transmission Date: 20140414
  Serious: Yes (Other)
  Sender: FDA-Public Use
  Company Number: PHHY2013CA034931

PATIENT
  Sex: Female

DRUGS (3)
  1. GLIVEC [Suspect]
     Indication: CHRONIC MYELOID LEUKAEMIA
     Dosage: 400 MG, QD
     Route: 048
     Dates: start: 2003
  2. GLIVEC [Suspect]
     Dosage: 400 MG, QD
  3. JANUMET [Concomitant]
     Indication: DIABETES MELLITUS
     Dosage: UNK UKN, UNK

REACTIONS (3)
  - Adenocarcinoma of colon [Recovered/Resolved]
  - Second primary malignancy [Unknown]
  - Nausea [Recovered/Resolved]
